FAERS Safety Report 5277054-6 (Version None)
Quarter: 2007Q1

REPORT INFORMATION
  Report Type: 
  Country: None (occurrence: None)
  Receive Date: 20070327
  Receipt Date: 20070228
  Transmission Date: 20070707
  Serious: No
  Sender: FDA-Public Use
  Company Number: US-BRISTOL-MYERS SQUIBB COMPANY-13695564

PATIENT
  Age: 61 Year
  Sex: Female
  Weight: 104 kg

DRUGS (11)
  1. ORENCIA [Suspect]
     Indication: RHEUMATOID ARTHRITIS
     Dates: start: 20060207
  2. FOLATE [Concomitant]
  3. METHOTREXATE [Concomitant]
  4. NOVOLIN 50/50 [Concomitant]
  5. HUMALOG [Concomitant]
  6. NORVASC [Concomitant]
  7. ZOCOR [Concomitant]
  8. PROTONIX [Concomitant]
  9. AMITRIPTYLINE HCL [Concomitant]
  10. AVANDIA [Concomitant]
  11. METFORMIN HCL [Concomitant]

REACTIONS (4)
  - CHEST PAIN [None]
  - HYPOAESTHESIA [None]
  - PAIN IN EXTREMITY [None]
  - PALPITATIONS [None]
